FAERS Safety Report 23968538 (Version 1)
Quarter: 2024Q2

REPORT INFORMATION
  Report Type: Spontaneous
  Country: TR (occurrence: TR)
  Receive Date: 20240612
  Receipt Date: 20240612
  Transmission Date: 20240716
  Serious: Yes (Other)
  Sender: FDA-Public Use
  Company Number: TR-GILEAD-2024-0675645

PATIENT
  Age: 46 Year
  Sex: Female

DRUGS (1)
  1. TRODELVY [Suspect]
     Active Substance: SACITUZUMAB GOVITECAN-HZIY
     Indication: Triple negative breast cancer
     Dosage: UNK
     Route: 065
     Dates: start: 202311

REACTIONS (6)
  - Disease progression [Unknown]
  - Neutropenia [Unknown]
  - Asthenia [Unknown]
  - Alopecia [Unknown]
  - Diarrhoea [Unknown]
  - Liver disorder [Unknown]
